FAERS Safety Report 8354239-3 (Version None)
Quarter: 2012Q2

REPORT INFORMATION
  Report Type: 
  Country: None (occurrence: None)
  Receive Date: 20120511
  Receipt Date: 20120503
  Transmission Date: 20120825
  Serious: Yes (Other)
  Sender: FDA-Public Use
  Company Number: FR-ABBOTT-12P-056-0910372-00

PATIENT
  Sex: Female
  Weight: 50 kg

DRUGS (1)
  1. HUMIRA [Suspect]
     Indication: CROHN'S DISEASE
     Route: 058
     Dates: start: 20120217, end: 20120217

REACTIONS (4)
  - AREFLEXIA [None]
  - ANAL ABSCESS [None]
  - DYSGEUSIA [None]
  - VIITH NERVE PARALYSIS [None]
